FAERS Safety Report 13782526 (Version 1)
Quarter: 2017Q3

REPORT INFORMATION
  Report Type: Spontaneous
  Country: AU (occurrence: AU)
  Receive Date: 20170724
  Receipt Date: 20170724
  Transmission Date: 20171127
  Serious: Yes (Other)
  Sender: FDA-Public Use
  Company Number: AU-GILEAD-2017-0277425

PATIENT
  Age: 50 Year
  Sex: Male

DRUGS (8)
  1. MAGNESIUM [Concomitant]
     Active Substance: MAGNESIUM
     Dosage: 400 MG, QHS
     Route: 065
  2. CLOVE OIL\HERBALS [Concomitant]
     Active Substance: CLOVE OIL\HERBALS
     Dosage: 1 ML, UNK
     Route: 065
  3. HARVONI [Suspect]
     Active Substance: LEDIPASVIR\SOFOSBUVIR
     Indication: CHRONIC HEPATITIS C
     Dosage: UNK
     Route: 065
     Dates: start: 20161201, end: 20170203
  4. PARACETAMOL [Concomitant]
     Active Substance: ACETAMINOPHEN
     Dosage: 1 G, QID
     Route: 065
  5. AMOXYCILLIN/CLAVULANIC ACID GENERIC HEALTH [Concomitant]
     Dosage: 1 DF, UNK
     Route: 065
  6. LACTULOSE. [Concomitant]
     Active Substance: LACTULOSE
     Route: 065
  7. PARACETAMOL/CODEINE [Concomitant]
     Active Substance: ACETAMINOPHEN\CODEINE PHOSPHATE
     Dosage: UNK, QID
     Route: 065
  8. IBUPROFEN. [Concomitant]
     Active Substance: IBUPROFEN
     Dosage: 400 MG, TID
     Route: 065

REACTIONS (5)
  - Tooth infection [Unknown]
  - Viral mutation identified [Unknown]
  - Unevaluable event [Unknown]
  - Treatment failure [Unknown]
  - Hepatic encephalopathy [Recovering/Resolving]
